FAERS Safety Report 10413107 (Version 3)
Quarter: 2014Q3

REPORT INFORMATION
  Report Type: Spontaneous
  Country: US (occurrence: US)
  Receive Date: 20140827
  Receipt Date: 20140911
  Transmission Date: 20150326
  Serious: No
  Sender: FDA-Public Use
  Company Number: US-BAXTER-2014BAX048461

PATIENT
  Sex: Male

DRUGS (1)
  1. DIANEAL LOW CALCIUM PERITONEAL DIALYSIS SOLUTION WITH DEXTROSE [Suspect]
     Active Substance: CALCIUM CHLORIDE\DEXTROSE\MAGNESIUM CHLORIDE\SODIUM CHLORIDE\SODIUM LACTATE
     Indication: PERITONEAL DIALYSIS
     Route: 033

REACTIONS (9)
  - Abdominal distension [Unknown]
  - Weight decreased [Recovered/Resolved]
  - Abdominal discomfort [Recovering/Resolving]
  - Musculoskeletal pain [Unknown]
  - Procedural pain [Unknown]
  - Joint swelling [Recovering/Resolving]
  - Abdominal pain [Not Recovered/Not Resolved]
  - Peritoneal dialysis complication [Not Recovered/Not Resolved]
  - Gastric dilatation [Recovered/Resolved]
